FAERS Safety Report 23666733 (Version 1)
Quarter: 2024Q1

REPORT INFORMATION
  Report Type: Spontaneous
  Country: PT (occurrence: PT)
  Receive Date: 20240325
  Receipt Date: 20240325
  Transmission Date: 20240410
  Serious: Yes (Other)
  Sender: FDA-Public Use
  Company Number: None

PATIENT
  Age: 68 Year
  Sex: Male
  Weight: 69 kg

DRUGS (1)
  1. DOXORUBICIN HYDROCHLORIDE [Suspect]
     Active Substance: DOXORUBICIN HYDROCHLORIDE
     Indication: Hodgkin^s disease lymphocyte predominance type stage unspecified
     Dosage: 10 MG/M2, 1 CYCLICAL, ON DAY 1 AND DAY 8 OF EACH CYCLE
     Route: 042
     Dates: start: 20240311, end: 20240311

REACTIONS (5)
  - Feeling hot [Recovered/Resolved]
  - Neck pain [Recovered/Resolved]
  - Discomfort [Recovered/Resolved]
  - Back pain [Recovered/Resolved]
  - Erythema [Recovered/Resolved]

NARRATIVE: CASE EVENT DATE: 20240311
